FAERS Safety Report 5531614-3 (Version None)
Quarter: 2007Q4

REPORT INFORMATION
  Report Type: 
  Country: None (occurrence: None)
  Receive Date: 20071203
  Receipt Date: 20071123
  Transmission Date: 20080405
  Serious: Yes (Hospitalization, Other)
  Sender: FDA-Public Use
  Company Number: DE-JNJFOC-20071108979

PATIENT
  Age: 81 Year
  Sex: Male

DRUGS (2)
  1. SIROS [Suspect]
     Indication: URINARY TRACT INFECTION
     Route: 065
  2. AVELOX [Suspect]
     Indication: URINARY TRACT INFECTION
     Route: 065

REACTIONS (2)
  - HEPATIC FAILURE [None]
  - RENAL FAILURE [None]
